FAERS Safety Report 24590568 (Version 1)
Quarter: 2024Q4

REPORT INFORMATION
  Report Type: Report from Study
  Country: GR (occurrence: GR)
  Receive Date: 20241107
  Receipt Date: 20241107
  Transmission Date: 20250114
  Serious: Yes (Other)
  Sender: CELLTRION
  Company Number: GR-CELLTRION INC.-2024GR013881

PATIENT

DRUGS (5)
  1. INFLIXIMAB [Suspect]
     Active Substance: INFLIXIMAB
     Indication: Colitis ulcerative
     Dosage: 500 MG INDUCTION SCHEME; 5X100MG INDUCTION SCHEME
     Route: 042
     Dates: start: 20240304, end: 2024
  2. INFLIXIMAB [Suspect]
     Active Substance: INFLIXIMAB
     Dosage: 500 MG INDUCTION SCHEME; 5X100MG INDUCTION SCHEME
     Route: 042
     Dates: start: 20240315
  3. INFLIXIMAB [Suspect]
     Active Substance: INFLIXIMAB
     Dosage: 500 MG INDUCTION SCHEME; 5X100MG INDUCTION SCHEME
     Route: 042
     Dates: start: 20240419
  4. INFLIXIMAB [Suspect]
     Active Substance: INFLIXIMAB
     Indication: Colitis ulcerative
     Dosage: 120 MG,  EVERY 2 WEEKS
     Route: 058
     Dates: start: 202408
  5. MESALAMINE [Concomitant]
     Active Substance: MESALAMINE

REACTIONS (7)
  - Colitis ulcerative [Not Recovered/Not Resolved]
  - Myalgia [Not Recovered/Not Resolved]
  - Arthralgia [Not Recovered/Not Resolved]
  - Product supply issue [Unknown]
  - Therapy interrupted [Unknown]
  - Overdose [Unknown]
  - Intentional product use issue [Unknown]
